FAERS Safety Report 6030686-X (Version None)
Quarter: 2009Q1

REPORT INFORMATION
  Report Type: 
  Country: None (occurrence: None)
  Receive Date: 20090107
  Receipt Date: 20081231
  Transmission Date: 20090719
  Serious: Yes (Hospitalization)
  Sender: FDA-Public Use
  Company Number: NZ-ROXANE LABORATORIES, INC.-2008-RO-00508RO

PATIENT
  Age: 33 Year
  Sex: Female

DRUGS (14)
  1. MERCAPTOPURINE [Suspect]
     Indication: RETROPERITONEAL FIBROSIS
     Dosage: 100MG
  2. MERCAPTOPURINE [Suspect]
     Dosage: 75MG
  3. PREDNISONE [Suspect]
     Indication: RETROPERITONEAL FIBROSIS
     Dosage: 60MG
  4. TAMOXIFEN CITRATE [Suspect]
     Indication: RETROPERITONEAL FIBROSIS
  5. TAMOXIFEN CITRATE [Suspect]
     Indication: DESMOID TUMOUR
  6. FUROSEMIDE [Suspect]
  7. MORPHINE [Suspect]
  8. SPIRONOLACTONE [Suspect]
  9. NADOLOL [Suspect]
  10. FLUOXETINE [Suspect]
  11. PARACETAMOL [Suspect]
  12. METOCLOPRAMIDE [Suspect]
  13. OMEPRAZOLE [Suspect]
  14. TEMAZEPAM [Suspect]

REACTIONS (3)
  - HEPATOTOXICITY [None]
  - LABORATORY TEST ABNORMAL [None]
  - RETROPERITONEAL FIBROSIS [None]
